FAERS Safety Report 9570533 (Version 1)
Quarter: 2013Q3

REPORT INFORMATION
  Report Type: Spontaneous
  Country: US (occurrence: US)
  Receive Date: 20130930
  Receipt Date: 20130930
  Transmission Date: 20140515
  Serious: No
  Sender: FDA-Public Use
  Company Number: US-AMGEN-USASP2013064287

PATIENT
  Age: 53 Year
  Sex: Male

DRUGS (3)
  1. ENBREL [Suspect]
     Indication: PRODUCT USED FOR UNKNOWN INDICATION
     Dosage: 50 MG, 2 TIMES/WK
     Route: 058
  2. FLUOXETINE [Concomitant]
     Dosage: 10 MG, UNK
  3. SORIATANE [Concomitant]
     Dosage: 10 MG, UNK

REACTIONS (2)
  - Therapeutic response decreased [Unknown]
  - Psoriasis [Unknown]
